FAERS Safety Report 13078716 (Version 2)
Quarter: 2017Q2

REPORT INFORMATION
  Report Type: Spontaneous
  Country: IT (occurrence: IT)
  Receive Date: 20170102
  Receipt Date: 20170424
  Transmission Date: 20170830
  Serious: Yes (Hospitalization)
  Sender: FDA-Public Use
  Company Number: IT-B.I. PHARMACEUTICALS,INC./RIDGEFIELD-2016-BI-087996

PATIENT
  Age: 65 Year
  Sex: Male

DRUGS (3)
  1. PRADAXA [Suspect]
     Active Substance: DABIGATRAN ETEXILATE MESYLATE
     Indication: ATRIAL FIBRILLATION
     Route: 048
     Dates: start: 20160113, end: 20160131
  2. CONGESCOR [Concomitant]
     Active Substance: BISOPROLOL
     Indication: PRODUCT USED FOR UNKNOWN INDICATION
     Route: 048
  3. GLUCOPHAGE [Concomitant]
     Active Substance: METFORMIN HYDROCHLORIDE
     Indication: PRODUCT USED FOR UNKNOWN INDICATION
     Route: 048

REACTIONS (3)
  - Face oedema [Recovered/Resolved]
  - Rash maculo-papular [Recovered/Resolved]
  - Skin exfoliation [Recovered/Resolved]

NARRATIVE: CASE EVENT DATE: 20160128
